FAERS Safety Report 11729643 (Version 2)
Quarter: 2015Q4

REPORT INFORMATION
  Report Type: Spontaneous
  Country: FR (occurrence: FR)
  Receive Date: 20151112
  Receipt Date: 20151229
  Transmission Date: 20160304
  Serious: Yes (Death, Hospitalization)
  Sender: FDA-Public Use
  Company Number: FR-SA-2015SA179297

PATIENT
  Age: 46 Year
  Sex: Female

DRUGS (1)
  1. TERIFLUNOMIDE [Suspect]
     Active Substance: TERIFLUNOMIDE
     Indication: MULTIPLE SCLEROSIS
     Route: 065
     Dates: start: 201501

REACTIONS (9)
  - Mouth ulceration [Fatal]
  - Mucosal ulceration [Fatal]
  - Toxic epidermal necrolysis [Fatal]
  - Nasal mucosal ulcer [Fatal]
  - Acute respiratory distress syndrome [Fatal]
  - Multi-organ failure [Fatal]
  - Pyrexia [Fatal]
  - Rash maculo-papular [Fatal]
  - Vaginal inflammation [Fatal]

NARRATIVE: CASE EVENT DATE: 2015
